FAERS Safety Report 7101820-5 (Version None)
Quarter: 2010Q4

REPORT INFORMATION
  Report Type: 
  Country: None (occurrence: None)
  Receive Date: 20101115
  Receipt Date: 20101102
  Transmission Date: 20110411
  Serious: Yes (Hospitalization)
  Sender: FDA-Public Use
  Company Number: PHHY2010JP56152

PATIENT
  Sex: Male
  Weight: 65 kg

DRUGS (5)
  1. DIOVAN HCT [Suspect]
     Indication: HYPERTENSION
     Dosage: 1 DF, QD (IN THE MORNING )
     Route: 048
     Dates: start: 20100714, end: 20100817
  2. NU-LOTAN [Suspect]
     Indication: HYPERTENSION
     Route: 048
  3. GASTER D [Concomitant]
     Indication: GASTRITIS
     Dosage: 1 DF, UNK
     Route: 048
     Dates: start: 20091119
  4. MUCOSTA [Concomitant]
     Indication: GASTRITIS
     Dosage: 2 DF, UNK
     Route: 048
     Dates: start: 20091119
  5. ROCEPHIN [Suspect]
     Dosage: CONTINUOUSLY FROM THE MORNING TO THE EVENING

REACTIONS (5)
  - CELL MARKER INCREASED [None]
  - DYSPNOEA [None]
  - EMPHYSEMA [None]
  - INTERSTITIAL LUNG DISEASE [None]
  - SURFACTANT PROTEIN INCREASED [None]
